FAERS Safety Report 9761932 (Version 2)
Quarter: 2014Q2

REPORT INFORMATION
  Report Type: Spontaneous
  Country: US (occurrence: US)
  Receive Date: 20131216
  Receipt Date: 20140519
  Transmission Date: 20141212
  Serious: No
  Sender: FDA-Public Use
  Company Number: US-BIOGENIDEC-2013BI106258

PATIENT
  Age: 37 Year
  Sex: Male

DRUGS (17)
  1. TECFIDERA [Suspect]
     Indication: MULTIPLE SCLEROSIS
     Route: 048
  2. TECFIDERA [Suspect]
     Indication: MULTIPLE SCLEROSIS
     Dates: start: 20130815
  3. AVONEX [Concomitant]
     Indication: MULTIPLE SCLEROSIS
     Route: 030
  4. AVONEX [Concomitant]
     Indication: MULTIPLE SCLEROSIS
     Route: 030
     Dates: start: 20100119, end: 20130815
  5. AVONEX [Concomitant]
     Indication: MULTIPLE SCLEROSIS
     Route: 030
     Dates: start: 20101101
  6. KEPPRA [Concomitant]
  7. ZOLOFT [Concomitant]
  8. GABAPENTIN [Concomitant]
  9. BACLOFEN [Concomitant]
  10. TAMSULOSIN [Concomitant]
  11. SERTRALINE [Concomitant]
  12. MODAFINIL [Concomitant]
  13. ZANAFLEX [Concomitant]
  14. VITAMIN D [Concomitant]
  15. VITAMIN B [Concomitant]
  16. FIBER [Concomitant]
  17. PRIVIDDUAL (NOS) [Concomitant]
     Dates: start: 2011

REACTIONS (2)
  - Abnormal dreams [Not Recovered/Not Resolved]
  - Blood count abnormal [Unknown]
